FAERS Safety Report 23267788 (Version 1)
Quarter: 2023Q4

REPORT INFORMATION
  Report Type: Spontaneous
  Country: US (occurrence: US)
  Receive Date: 20231206
  Receipt Date: 20231206
  Transmission Date: 20240110
  Serious: No
  Sender: FDA-Public Use
  Company Number: US-Amarin Pharma  Inc-2023AMR000447

PATIENT
  Age: 64 Year
  Sex: Male

DRUGS (1)
  1. VASCEPA [Suspect]
     Active Substance: ICOSAPENT ETHYL
     Indication: Coronary artery occlusion
     Route: 048

REACTIONS (7)
  - Gastrooesophageal reflux disease [Unknown]
  - Poor quality product administered [Unknown]
  - Product dose omission issue [Unknown]
  - Product leakage [Unknown]
  - Product physical issue [Unknown]
  - Product size issue [Unknown]
  - Product odour abnormal [Unknown]

NARRATIVE: CASE EVENT DATE: 20230101
